FAERS Safety Report 14211429 (Version 2)
Quarter: 2018Q1

REPORT INFORMATION
  Report Type: Spontaneous
  Country: US (occurrence: US)
  Receive Date: 20171121
  Receipt Date: 20180130
  Transmission Date: 20180508
  Serious: Yes (Other)
  Sender: FDA-Public Use
  Company Number: US-BAYER-2017-220149

PATIENT
  Age: 59 Year
  Sex: Female

DRUGS (44)
  1. AVELOX [Suspect]
     Active Substance: MOXIFLOXACIN HYDROCHLORIDE
     Indication: TOOTHACHE
     Dosage: 400 MG, UNK
     Dates: start: 20051014
  2. LEVAQUIN [Suspect]
     Active Substance: LEVOFLOXACIN
     Dosage: 500 MG, UNK
     Dates: start: 20050919, end: 20050929
  3. LEVAQUIN [Suspect]
     Active Substance: LEVOFLOXACIN
     Dosage: 500 MG, UNK
     Dates: start: 20051001, end: 20051015
  4. SULFAMETHOXAZOLE [Concomitant]
     Active Substance: SULFAMETHOXAZOLE
     Dosage: UNK
     Dates: start: 20131017
  5. FLUCONAZOLE. [Concomitant]
     Active Substance: FLUCONAZOLE
     Dosage: 150 MG, UNK
     Dates: start: 20131018
  6. CIPRO [Suspect]
     Active Substance: CIPROFLOXACIN HYDROCHLORIDE
     Indication: SINUS PAIN
     Dosage: 250 MG, UNK
     Dates: start: 20011207, end: 20011221
  7. CIPROFLOXACIN. [Suspect]
     Active Substance: CIPROFLOXACIN
     Indication: SINUS PAIN
     Dosage: 500 MG, UNK
     Dates: start: 20140320, end: 20140330
  8. CIPROFLOXACIN. [Suspect]
     Active Substance: CIPROFLOXACIN
     Indication: SINUS PAIN
     Dosage: 500 MG, UNK
     Dates: start: 20060216, end: 20060226
  9. LEVAQUIN [Suspect]
     Active Substance: LEVOFLOXACIN
     Dosage: 500 MG, UNK
     Dates: start: 20070313, end: 20070323
  10. LEVAQUIN [Suspect]
     Active Substance: LEVOFLOXACIN
     Dosage: 500 MG, UNK
     Dates: start: 20090528, end: 20090607
  11. LIPITOR [Concomitant]
     Active Substance: ATORVASTATIN CALCIUM
     Dosage: 20 MG, UNK
     Dates: start: 20000519
  12. LIPITOR [Concomitant]
     Active Substance: ATORVASTATIN CALCIUM
     Dosage: 10 MG, UNK
     Dates: start: 20000621
  13. METRONIDAZOLE. [Concomitant]
     Active Substance: METRONIDAZOLE
     Dosage: 500 MG, UNK
     Dates: start: 20130805
  14. METRONIDAZOLE. [Concomitant]
     Active Substance: METRONIDAZOLE
     Dosage: 500 MG, UNK
     Dates: start: 20140320
  15. CLARITHROMYCIN. [Concomitant]
     Active Substance: CLARITHROMYCIN
     Dosage: 500 MG, UNK
     Dates: start: 20140318
  16. AVELOX [Suspect]
     Active Substance: MOXIFLOXACIN HYDROCHLORIDE
     Indication: SINUS PAIN
     Dosage: 400 MG, UNK
     Dates: start: 20060605, end: 20060615
  17. AVELOX [Suspect]
     Active Substance: MOXIFLOXACIN HYDROCHLORIDE
     Indication: SINUS PAIN
     Dosage: 400 MG, UNK
     Dates: start: 20060109
  18. LEVAQUIN [Suspect]
     Active Substance: LEVOFLOXACIN
     Dosage: 500 MG, UNK
     Dates: start: 20051109, end: 20051123
  19. LEVAQUIN [Suspect]
     Active Substance: LEVOFLOXACIN
     Dosage: 250 MG, UNK
     Dates: start: 20080813, end: 20080818
  20. LISINOPRIL. [Concomitant]
     Active Substance: LISINOPRIL
     Indication: HYPERTENSION
     Dosage: DAILY DOSE 20 MG
  21. AMOX [Concomitant]
     Active Substance: UNSPECIFIED INGREDIENT
     Dosage: 875-125 MG
     Dates: start: 20140313
  22. LEVAQUIN [Suspect]
     Active Substance: LEVOFLOXACIN
     Dosage: 500 MG, UNK
     Dates: start: 20060109, end: 20060123
  23. FLUCONAZOLE. [Concomitant]
     Active Substance: FLUCONAZOLE
     Dosage: 150 MG, UNK
     Dates: start: 20140318
  24. CIPRO [Suspect]
     Active Substance: CIPROFLOXACIN HYDROCHLORIDE
     Indication: SINUS PAIN
     Dosage: 500 MG, UNK
     Dates: start: 20000410, end: 20000420
  25. CIPROFLOXACIN. [Suspect]
     Active Substance: CIPROFLOXACIN
     Indication: TOOTHACHE
     Dosage: 500 MG, UNK
     Dates: start: 20060911, end: 20060917
  26. LEVAQUIN [Suspect]
     Active Substance: LEVOFLOXACIN
     Dosage: 500 MG, UNK
     Dates: start: 20020205, end: 20020215
  27. LEVAQUIN [Suspect]
     Active Substance: LEVOFLOXACIN
     Dosage: 500 MG, UNK
     Dates: start: 20010402, end: 20010416
  28. LEVAQUIN [Suspect]
     Active Substance: LEVOFLOXACIN
     Dosage: 500 MG, UNK
     Dates: start: 20050907, end: 20050917
  29. LEVAQUIN [Suspect]
     Active Substance: LEVOFLOXACIN
     Dosage: 500 MG, UNK
     Dates: start: 20090303, end: 20090313
  30. DOXYCYCLINE. [Concomitant]
     Active Substance: DOXYCYCLINE
     Dosage: 100 MG, UNK
     Dates: start: 20070120
  31. AMOXICILLIN. [Concomitant]
     Active Substance: AMOXICILLIN
     Dosage: 875 MG, UNK
     Dates: start: 20131019
  32. AVELOX [Suspect]
     Active Substance: MOXIFLOXACIN HYDROCHLORIDE
     Indication: SINUS PAIN
     Dosage: 400 MG, UNK
     Dates: start: 20051025
  33. CIPRO [Suspect]
     Active Substance: CIPROFLOXACIN HYDROCHLORIDE
     Indication: TOOTHACHE
  34. CIPRO [Suspect]
     Active Substance: CIPROFLOXACIN HYDROCHLORIDE
     Indication: TOOTHACHE
  35. LEVAQUIN [Suspect]
     Active Substance: LEVOFLOXACIN
     Dosage: 500 MG, UNK
     Dates: start: 20050829, end: 20050908
  36. LEVAQUIN [Suspect]
     Active Substance: LEVOFLOXACIN
     Dosage: 750 MG, UNK
     Dates: start: 20080407, end: 20080412
  37. LEVOFLOXACIN. [Suspect]
     Active Substance: LEVOFLOXACIN
     Dosage: 250 MG, UNK
     Dates: start: 20111218, end: 20111221
  38. AMOX [Concomitant]
     Active Substance: UNSPECIFIED INGREDIENT
     Dosage: 875-125 MG
     Dates: start: 20140110
  39. LEVAQUIN [Suspect]
     Active Substance: LEVOFLOXACIN
     Dosage: 500 MG, UNK
     Dates: start: 20010108, end: 20010122
  40. LEVAQUIN [Suspect]
     Active Substance: LEVOFLOXACIN
     Dosage: 750 MG, UNK
     Dates: start: 20080122, end: 20080202
  41. ZETIA [Concomitant]
     Active Substance: EZETIMIBE
     Dosage: 10 MG, UNK
     Dates: start: 20080609
  42. BIAXIN [Concomitant]
     Active Substance: CLARITHROMYCIN
     Dosage: 500 MG, UNK
     Dates: start: 20020117
  43. AMOX [Concomitant]
     Active Substance: UNSPECIFIED INGREDIENT
     Dosage: 875-125 MG
     Dates: start: 20070305
  44. DOXYCYCLINE MONOHYDRATE [DOXYCYCLINE MONOHYDRATE] [Concomitant]
     Dosage: 100 MG, UNK
     Dates: start: 20140211

REACTIONS (5)
  - Neuropathy peripheral [None]
  - Peripheral nerve injury [None]
  - Depression [None]
  - Pain [None]
  - Mental disorder [None]

NARRATIVE: CASE EVENT DATE: 20090316
